FAERS Safety Report 7780628-1 (Version None)
Quarter: 2011Q3

REPORT INFORMATION
  Report Type: 
  Country: None (occurrence: None)
  Receive Date: 20110927
  Receipt Date: 20101215
  Transmission Date: 20111222
  Serious: Yes (Other)
  Sender: FDA-Public Use
  Company Number: US-BRISTOL-MYERS SQUIBB COMPANY-15424229

PATIENT
  Age: 92 Year
  Sex: Female

DRUGS (4)
  1. LASIX [Suspect]
  2. AVAPRO [Suspect]
     Dosage: FOR MORE THAN 10 YEARS
  3. AMIODARONE HCL [Suspect]
  4. NORVASC [Suspect]

REACTIONS (2)
  - OEDEMA MOUTH [None]
  - SWELLING FACE [None]
